FAERS Safety Report 5767527-1 (Version None)
Quarter: 2008Q2

REPORT INFORMATION
  Report Type: 
  Country: None (occurrence: None)
  Receive Date: 20080612
  Receipt Date: 20080605
  Transmission Date: 20081010
  Serious: Yes (Death)
  Sender: FDA-Public Use
  Company Number: EMADSS2002006612

PATIENT
  Sex: Female
  Weight: 90 kg

DRUGS (7)
  1. RISPERDAL CONSTA [Suspect]
     Route: 030
  2. RISPERDAL CONSTA [Suspect]
     Indication: MANIA
     Route: 030
  3. NEUROCIL [Suspect]
     Indication: MANIA
     Route: 048
  4. TEGRETOL [Concomitant]
     Route: 065
  5. GLIANIMON [Concomitant]
     Route: 048
  6. CIATYL-Z [Concomitant]
     Route: 048
  7. ROHYPNOL [Concomitant]

REACTIONS (1)
  - ILEUS [None]
